FAERS Safety Report 21817539 (Version 4)
Quarter: 2023Q1

REPORT INFORMATION
  Report Type: Spontaneous
  Country: US (occurrence: US)
  Receive Date: 20230104
  Receipt Date: 20230201
  Transmission Date: 20230418
  Serious: No
  Sender: FDA-Public Use
  Company Number: US-PFIZER INC-PV202200106191

PATIENT
  Age: 70 Year
  Sex: Male
  Weight: 126.98 kg

DRUGS (1)
  1. VYNDAMAX [Suspect]
     Active Substance: TAFAMIDIS
     Dosage: 61 MG
     Dates: start: 2022

REACTIONS (1)
  - Therapeutic response unexpected [Recovered/Resolved]
